FAERS Safety Report 8819341 (Version 1)
Quarter: 2012Q4

REPORT INFORMATION
  Report Type: 
  Country: DE (occurrence: DE)
  Receive Date: 20121001
  Receipt Date: 20121001
  Transmission Date: 20130627
  Serious: Yes (Hospitalization)
  Sender: FDA-Public Use
  Company Number: DE-JNJFOC-20120910084

PATIENT
  Age: 56 Year
  Sex: Female

DRUGS (1)
  1. SIMPONI [Suspect]
     Indication: PSORIATIC ARTHROPATHY
     Route: 058
     Dates: start: 20111205, end: 20111205

REACTIONS (7)
  - Respiratory distress [Recovered/Resolved with Sequelae]
  - Visual impairment [Recovered/Resolved with Sequelae]
  - Weight bearing difficulty [Recovered/Resolved with Sequelae]
  - Exercise tolerance decreased [Recovered/Resolved with Sequelae]
  - Nausea [Recovered/Resolved with Sequelae]
  - Pain [Recovered/Resolved with Sequelae]
  - Dyspnoea [Recovered/Resolved with Sequelae]
